FAERS Safety Report 4420632-4 (Version None)
Quarter: 2004Q2

REPORT INFORMATION
  Report Type: 
  Country: None (occurrence: None)
  Receive Date: 20040618
  Receipt Date: 20040220
  Transmission Date: 20050107
  Serious: Yes (Other)
  Sender: FDA-Public Use
  Company Number: US-SHR-03-017318

PATIENT
  Age: 84 Year
  Sex: Male

DRUGS (2)
  1. FLUDARA [Suspect]
     Indication: LYMPHOMA
     Dosage: 100 MG, 1 DOSE, INTRAVENOUS
     Route: 042
     Dates: start: 20031001, end: 20031001
  2. SINEMET [Concomitant]

REACTIONS (1)
  - WHITE BLOOD CELL COUNT DECREASED [None]
